FAERS Safety Report 11041161 (Version 2)
Quarter: 2015Q2

REPORT INFORMATION
  Report Type: Spontaneous
  Country: US (occurrence: US)
  Receive Date: 20150416
  Receipt Date: 20150525
  Transmission Date: 20150821
  Serious: Yes (Hospitalization)
  Sender: FDA-Public Use
  Company Number: US-JNJFOC-20130800677

PATIENT
  Age: 78 Year
  Sex: Male
  Weight: 107.1 kg

DRUGS (2)
  1. XARELTO [Suspect]
     Active Substance: RIVAROXABAN
     Indication: CEREBROVASCULAR ACCIDENT PROPHYLAXIS
     Dosage: EVERY EVENING
     Route: 048
     Dates: start: 20130420, end: 20130521
  2. XARELTO [Suspect]
     Active Substance: RIVAROXABAN
     Indication: ATRIAL FIBRILLATION
     Dosage: EVERY EVENING
     Route: 048
     Dates: start: 20130420, end: 20130521

REACTIONS (2)
  - Haemorrhage [Recovered/Resolved]
  - Spontaneous haematoma [Recovered/Resolved]

NARRATIVE: CASE EVENT DATE: 20130521
